FAERS Safety Report 25189480 (Version 1)
Quarter: 2025Q2

REPORT INFORMATION
  Report Type: Spontaneous
  Country: CN (occurrence: CN)
  Receive Date: 20250411
  Receipt Date: 20250411
  Transmission Date: 20250717
  Serious: Yes (Other)
  Sender: NOVARTIS
  Company Number: CN-002147023-NVSC2025CN057267

PATIENT
  Age: 32 Year
  Sex: Female
  Weight: 59.9 kg

DRUGS (4)
  1. OXCARBAZEPINE [Suspect]
     Active Substance: OXCARBAZEPINE
     Indication: Brain injury
     Dosage: 1.05 G, QD
     Route: 048
     Dates: start: 20250314, end: 20250327
  2. OXCARBAZEPINE [Suspect]
     Active Substance: OXCARBAZEPINE
     Indication: Mental disorder
  3. HALOPERIDOL [Concomitant]
     Active Substance: HALOPERIDOL
     Indication: Brain injury
     Dosage: 6 MG, BID
     Route: 048
     Dates: start: 20250314, end: 20250327
  4. HALOPERIDOL [Concomitant]
     Active Substance: HALOPERIDOL
     Indication: Mental disorder

REACTIONS (5)
  - Rash [Recovering/Resolving]
  - Diarrhoea [Recovering/Resolving]
  - Rash erythematous [Unknown]
  - Papule [Unknown]
  - Off label use [Unknown]

NARRATIVE: CASE EVENT DATE: 20250326
